FAERS Safety Report 4580607-1 (Version None)
Quarter: 2005Q1

REPORT INFORMATION
  Report Type: 
  Country: None (occurrence: None)
  Receive Date: 20050214
  Receipt Date: 20040423
  Transmission Date: 20050727
  Serious: Yes (Other)
  Sender: FDA-Public Use
  Company Number: US-GLAXOSMITHKLINE-A0508334A

PATIENT
  Age: 76 Year
  Sex: Male

DRUGS (3)
  1. LAMICTAL [Suspect]
     Dosage: 100MG PER DAY
     Route: 048
     Dates: start: 20030701
  2. COUMADIN [Concomitant]
  3. DEMADEX [Concomitant]

REACTIONS (1)
  - CONVULSION [None]
